FAERS Safety Report 5361714-2 (Version None)
Quarter: 2007Q2

REPORT INFORMATION
  Report Type: 
  Country: None (occurrence: None)
  Receive Date: 20070619
  Receipt Date: 20070608
  Transmission Date: 20071010
  Serious: Yes (Death, Hospitalization)
  Sender: FDA-Public Use
  Company Number: FR-NOVOPROD-264010

PATIENT
  Sex: Male

DRUGS (7)
  1. NOVONORM [Suspect]
     Indication: INSULIN-REQUIRING TYPE II DIABETES MELLITUS
     Dosage: 2 MG, BID
     Route: 048
     Dates: end: 20070411
  2. LANTUS [Suspect]
     Dosage: 6 IU, QD
     Dates: end: 20070411
  3. KARDEGIC                           /00002703/ [Concomitant]
  4. TAHOR [Concomitant]
  5. KALEORID [Concomitant]
  6. LASILIX                            /00032601/ [Concomitant]
  7. RISPERDAL [Concomitant]
     Indication: AGITATION

REACTIONS (3)
  - DRUG INTERACTION [None]
  - HYPOGLYCAEMIA [None]
  - LUNG INFECTION [None]
